FAERS Safety Report 19270277 (Version 1)
Quarter: 2021Q2

REPORT INFORMATION
  Report Type: Spontaneous
  Country: NL (occurrence: NL)
  Receive Date: 20210518
  Receipt Date: 20210518
  Transmission Date: 20210717
  Serious: Yes (Other)
  Sender: FDA-Public Use
  Company Number: NL-MYLANLABS-2021M1028552

PATIENT
  Sex: Male
  Weight: 78 kg

DRUGS (3)
  1. AZELASTINE W/FLUTICASONE [Concomitant]
     Dosage: NASAL SPRAY, 137/50 ?G/DOSIS (MICROGRAM PER DOSE)
  2. MONTELUKAST [Suspect]
     Active Substance: MONTELUKAST SODIUM
     Indication: ASTHMA
     Dosage: 10 MILLIGRAM, QD (PER DAY 1 PIECE)
     Dates: start: 202101, end: 20210226
  3. SALBUTAMOL [Concomitant]
     Active Substance: ALBUTEROL
     Dosage: AEROSOL, 100 ?G/DOSIS (MICROGRAM PER DOSIS)

REACTIONS (2)
  - Emotional poverty [Not Recovered/Not Resolved]
  - Erectile dysfunction [Not Recovered/Not Resolved]
